FAERS Safety Report 8698700 (Version 2)
Quarter: 2012Q4

REPORT INFORMATION
  Report Type: 
  Country: US (occurrence: US)
  Receive Date: 20120802
  Receipt Date: 20120914
  Transmission Date: 20130627
  Serious: Yes (Other)
  Sender: FDA-Public Use
  Company Number: US-INCYTE CORPORATION-2012IN001375

PATIENT
  Age: 78 Year
  Sex: Male
  Weight: 106.58 kg

DRUGS (1)
  1. JAKAFI [Suspect]
     Indication: MYELOFIBROSIS
     Dosage: 10 mg, bid
     Route: 048
     Dates: start: 20120118, end: 20120416

REACTIONS (3)
  - Acute leukaemia [Not Recovered/Not Resolved]
  - Anaemia [Unknown]
  - Drug intolerance [None]
